FAERS Safety Report 6882860-8 (Version None)
Quarter: 2010Q3

REPORT INFORMATION
  Report Type: 
  Country: None (occurrence: None)
  Receive Date: 20100729
  Receipt Date: 20100715
  Transmission Date: 20110219
  Serious: Yes (Hospitalization)
  Sender: FDA-Public Use
  Company Number: DK-ELI_LILLY_AND_COMPANY-DK201007005191

PATIENT
  Sex: Female
  Weight: 50 kg

DRUGS (2)
  1. TERIPARATIDE [Suspect]
     Dosage: 20 UG, DAILY (1/D)
     Route: 058
     Dates: start: 20090814, end: 20100705
  2. LISINOPRIL [Concomitant]
     Indication: HYPERTENSION
     Dosage: 5 MG, UNKNOWN
     Route: 048
     Dates: start: 20091201

REACTIONS (2)
  - CONFUSIONAL STATE [None]
  - HYPERCALCAEMIA [None]
